FAERS Safety Report 12691237 (Version 3)
Quarter: 2016Q4

REPORT INFORMATION
  Report Type: Spontaneous
  Country: IT (occurrence: IT)
  Receive Date: 20160826
  Receipt Date: 20161007
  Transmission Date: 20170207
  Serious: Yes (Other)
  Sender: FDA-Public Use
  Company Number: IT-JNJFOC-20160813258

PATIENT

DRUGS (1)
  1. HUMAN CLOTTABLE PROTEIN/HUMAN THROMBIN [Suspect]
     Active Substance: FIBRINOGEN HUMAN\THROMBIN HUMAN
     Indication: NEUROSURGERY
     Route: 061

REACTIONS (6)
  - Off label use [Unknown]
  - Cerebrospinal fluid leakage [Unknown]
  - Cerebral haemorrhage [Unknown]
  - Hydrocephalus [Unknown]
  - Fat necrosis [Unknown]
  - Haemorrhage [Unknown]
